FAERS Safety Report 21242632 (Version 2)
Quarter: 2023Q4

REPORT INFORMATION
  Report Type: Other
  Country: BD (occurrence: None)
  Receive Date: 20220823
  Receipt Date: 20231103
  Transmission Date: 20240109
  Serious: Yes (Death, Hospitalization)
  Sender: FDA-Public Use
  Company Number: BD-ROCHE-3163541

PATIENT
  Age: 30 Year
  Sex: Male

DRUGS (12)
  1. RITUXIMAB [Suspect]
     Active Substance: RITUXIMAB
     Indication: Immune tolerance induction
     Dosage: LOW DOSE ADMINISTERED 2 WEEKS PRETRANSPLANT, 100 ML OF 0.9% NORMAL SALINE AND ADMINISTERED OVER 4 HO
     Route: 042
  2. VALGANCICLOVIR [Suspect]
     Active Substance: VALGANCICLOVIR
     Indication: Pneumonia cytomegaloviral
     Route: 048
  3. MYCOPHENOLATE MOFETIL [Suspect]
     Active Substance: MYCOPHENOLATE MOFETIL
     Indication: Prophylaxis against transplant rejection
     Dosage: ADMINISTERED 2 WEEKS PRIOR TO TRANSPLANTATION
     Route: 065
  4. BASILIXIMAB [Suspect]
     Active Substance: BASILIXIMAB
     Indication: Prophylaxis against transplant rejection
     Dosage: NEXT DOE ON POST TRANSPLANT DAY 4
     Route: 065
  5. TACROLIMUS [Suspect]
     Active Substance: TACROLIMUS
     Indication: Prophylaxis against transplant rejection
     Route: 065
  6. PREDNISOLONE [Suspect]
     Active Substance: PREDNISOLONE
     Indication: Prophylaxis against transplant rejection
     Dosage: ADMINISTERED 2 WEEKS PRIOR TO TRANSPLANTATION
     Route: 065
  7. PREDNISOLONE [Suspect]
     Active Substance: PREDNISOLONE
     Dosage: THEN REDUCED TO 20 MG AFTER 1 MONTH
     Route: 065
  8. PREDNISOLONE [Suspect]
     Active Substance: PREDNISOLONE
     Route: 065
  9. METHYLPREDNISOLONE [Suspect]
     Active Substance: METHYLPREDNISOLONE
     Indication: Transplant rejection
     Dosage: 3 CONSECUTIVE DAYS
     Route: 042
  10. HYDROCORTISONE [Concomitant]
     Active Substance: HYDROCORTISONE
     Indication: Premedication
  11. PHENIRAMINE [Concomitant]
     Active Substance: PHENIRAMINE
     Indication: Premedication
  12. SULFAMETHOXAZOLE\TRIMETHOPRIM [Concomitant]
     Active Substance: SULFAMETHOXAZOLE\TRIMETHOPRIM
     Indication: Antifungal prophylaxis
     Dosage: SULFAMETHOXAZOLE (400 MG) AND TRIMETHOPRIM (80 MG)

REACTIONS (5)
  - Pneumonia [Fatal]
  - Off label use [Fatal]
  - Pneumonia cytomegaloviral [Recovering/Resolving]
  - Gastroenteritis [Unknown]
  - Off label use [Unknown]
